FAERS Safety Report 8072009-0 (Version None)
Quarter: 2011Q4

REPORT INFORMATION
  Report Type: 
  Country: None (occurrence: None)
  Receive Date: 20111221
  Receipt Date: 20110906
  Transmission Date: 20120403
  Serious: Yes (Hospitalization)
  Sender: FDA-Public Use
  Company Number: PHHY2011US64733

PATIENT
  Age: 41 Year
  Sex: Male
  Weight: 138.6 kg

DRUGS (1)
  1. EXJADE [Suspect]
     Indication: MYELODYSPLASTIC SYNDROME
     Dosage: 1500 MG, QD, ORAL
     Route: 048
     Dates: start: 20110701

REACTIONS (7)
  - HEADACHE [None]
  - PYREXIA [None]
  - NAUSEA [None]
  - VOMITING [None]
  - BACK PAIN [None]
  - PAIN [None]
  - ABDOMINAL PAIN [None]
